FAERS Safety Report 9996574 (Version 2)
Quarter: 2014Q2

REPORT INFORMATION
  Report Type: Spontaneous
  Country: IT (occurrence: IT)
  Receive Date: 20140311
  Receipt Date: 20140502
  Transmission Date: 20141212
  Serious: Yes (Hospitalization)
  Sender: FDA-Public Use
  Company Number: IT-BRISTOL-MYERS SQUIBB COMPANY-20418604

PATIENT
  Age: 67 Year
  Sex: Male

DRUGS (2)
  1. METFORMIN HCL [Suspect]
     Indication: TYPE 2 DIABETES MELLITUS
     Dosage: 2000MG
     Route: 048
     Dates: start: 20130123, end: 20130623
  2. DICLOFENAC [Concomitant]

REACTIONS (3)
  - Metabolic acidosis [Recovering/Resolving]
  - Pulmonary oedema [Recovering/Resolving]
  - Vomiting [Recovering/Resolving]
